FAERS Safety Report 24790744 (Version 1)
Quarter: 2024Q4

REPORT INFORMATION
  Report Type: Spontaneous
  Country: ES (occurrence: ES)
  Receive Date: 20241230
  Receipt Date: 20241230
  Transmission Date: 20250114
  Serious: Yes (Hospitalization)
  Sender: MYLAN
  Company Number: None

PATIENT
  Age: 42 Year
  Sex: Female

DRUGS (2)
  1. DESOGESTREL\ETHINYL ESTRADIOL [Suspect]
     Active Substance: DESOGESTREL\ETHINYL ESTRADIOL
     Indication: Assisted fertilisation
     Dosage: UNK, 1-0-0 X 21 D (21 TABLETS)
     Route: 048
     Dates: start: 20230726, end: 20240315
  2. ESTRADIOL [Suspect]
     Active Substance: ESTRADIOL
     Indication: Assisted fertilisation
     Dosage: 2 MILLIGRAM, Q8H (30 TABLETS)
     Route: 048
     Dates: start: 20231017, end: 20240216

REACTIONS (3)
  - Hepatic cytolysis [Recovered/Resolved]
  - Hypocoagulable state [Recovered/Resolved]
  - Hyperbilirubinaemia [Recovered/Resolved]

NARRATIVE: CASE EVENT DATE: 20240418
